FAERS Safety Report 8523868-6 (Version None)
Quarter: 2012Q3

REPORT INFORMATION
  Report Type: 
  Country: None (occurrence: None)
  Receive Date: 20120720
  Receipt Date: 20120712
  Transmission Date: 20120928
  Serious: Yes (Hospitalization, Other)
  Sender: FDA-Public Use
  Company Number: US-NOVOPROD-356104

PATIENT
  Age: 2 Year
  Sex: Male

DRUGS (1)
  1. NORDITROPIN FLEXPRO [Suspect]
     Indication: PRODUCT USED FOR UNKNOWN INDICATION
     Dosage: 0.4 MG, QD
     Route: 058

REACTIONS (2)
  - CONVULSION [None]
  - BLOOD SODIUM INCREASED [None]
